FAERS Safety Report 8916453 (Version 2)
Quarter: 2013Q1

REPORT INFORMATION
  Report Type: Spontaneous
  Country: US (occurrence: US)
  Receive Date: 20121120
  Receipt Date: 20130110
  Transmission Date: 20140127
  Serious: Yes (Hospitalization)
  Sender: FDA-Public Use
  Company Number: US-BAYER-2012-120006

PATIENT
  Age: 22 Year
  Sex: Female
  Weight: 46 kg

DRUGS (5)
  1. YAZ [Suspect]
     Dosage: UNK
     Dates: start: 20100124, end: 20111208
  2. CANNABIS SATIVA SUBSP. INDICA TOP [Concomitant]
     Indication: APPETITE DISORDER
  3. CANNABIS SATIVA SUBSP. INDICA TOP [Concomitant]
     Indication: PAIN
  4. AMPHETAMINE SALTS [Concomitant]
     Indication: APPETITE DISORDER
  5. AMPHETAMINE SALTS [Concomitant]
     Indication: PAIN

REACTIONS (8)
  - Cholecystectomy [None]
  - Pain [None]
  - Injury [None]
  - General physical health deterioration [None]
  - Anxiety [None]
  - Anhedonia [None]
  - Emotional distress [None]
  - Pain [None]
